FAERS Safety Report 22541381 (Version 1)
Quarter: 2023Q2

REPORT INFORMATION
  Report Type: Other
  Country: PT (occurrence: PT)
  Receive Date: 20230609
  Receipt Date: 20230609
  Transmission Date: 20230721
  Serious: Yes (Disabling)
  Sender: FDA-Public Use
  Company Number: PT-DUCHESNAY-2023PT000202

PATIENT

DRUGS (1)
  1. OSPHENA [Suspect]
     Active Substance: OSPEMIFENE
     Indication: Menstrual cycle management
     Dosage: 60 MILLIGRAM, QD
     Route: 048
     Dates: start: 20230428, end: 20230512

REACTIONS (4)
  - Vaginal discharge [Recovering/Resolving]
  - Muscle spasms [Recovering/Resolving]
  - Vulvovaginal candidiasis [Recovering/Resolving]
  - Headache [Recovering/Resolving]

NARRATIVE: CASE EVENT DATE: 20230507
